FAERS Safety Report 21881431 (Version 1)
Quarter: 2023Q1

REPORT INFORMATION
  Report Type: Other
  Country: GB (occurrence: GB)
  Receive Date: 20230119
  Receipt Date: 20230119
  Transmission Date: 20230417
  Serious: Yes (Death)
  Sender: FDA-Public Use
  Company Number: GB-CELLTRION INC.-2023GB000841

PATIENT

DRUGS (2)
  1. RITUXIMAB [Suspect]
     Active Substance: RITUXIMAB
     Indication: Diffuse large B-cell lymphoma
  2. POLIVY [Suspect]
     Active Substance: POLATUZUMAB VEDOTIN-PIIQ
     Indication: Diffuse large B-cell lymphoma

REACTIONS (2)
  - Disease progression [Fatal]
  - Off label use [Fatal]
